FAERS Safety Report 16675882 (Version 1)
Quarter: 2019Q3

REPORT INFORMATION
  Report Type: Spontaneous
  Country: FR (occurrence: FR)
  Receive Date: 20190807
  Receipt Date: 20190807
  Transmission Date: 20191004
  Serious: Yes (Hospitalization)
  Sender: FDA-Public Use
  Company Number: FR-SUN PHARMACEUTICAL INDUSTRIES LTD-2019RR-216486

PATIENT
  Age: 24 Year
  Sex: Female
  Weight: 55 kg

DRUGS (4)
  1. FERTISTARTKIT [Suspect]
     Active Substance: MENOTROPINS
     Indication: IN VITRO FERTILISATION
     Dosage: DAILY, 150 OU 225 UI (1)
     Route: 058
     Dates: start: 20171229, end: 20180108
  2. FYREMADEL 0,25 MG/0,5 ML SOLUTION INJECTABLE EN SERINGUE PR?-REMPLIE [Suspect]
     Active Substance: GANIRELIX ACETATE
     Indication: IN VITRO FERTILISATION
     Dosage: 1 DOSAGE FORM, DAILY
     Route: 058
     Dates: start: 20180103, end: 20180108
  3. OVITRELLE [Suspect]
     Active Substance: CHORIOGONADOTROPIN ALFA
     Indication: IN VITRO FERTILISATION
     Dosage: 1 DOSAGE FORM, IN TOTAL
     Route: 058
     Dates: start: 20180109
  4. PROGESTAN [Suspect]
     Active Substance: PROGESTERONE
     Indication: IN VITRO FERTILISATION
     Dosage: 200 MILLIGRAM, DAILY
     Route: 067
     Dates: start: 20180111

REACTIONS (2)
  - Ovarian hyperstimulation syndrome [Recovered/Resolved]
  - Adnexal torsion [Recovered/Resolved]

NARRATIVE: CASE EVENT DATE: 201803
